FAERS Safety Report 9440702 (Version 3)
Quarter: 2014Q1

REPORT INFORMATION
  Report Type: Spontaneous
  Country: US (occurrence: None)
  Receive Date: 20130801
  Receipt Date: 20140328
  Transmission Date: 20141002
  Serious: Yes (Hospitalization, Other)
  Sender: FDA-Public Use
  Company Number: JPI-P-033839

PATIENT
  Age: 62 Year
  Sex: Male
  Weight: 83.92 kg

DRUGS (16)
  1. XYREM [Suspect]
     Indication: NARCOLEPSY
     Route: 048
     Dates: start: 20070604
  2. PROMETHAZINE CODEINE [Suspect]
     Indication: MIGRAINE
     Route: 048
  3. CETIRIZINE [Concomitant]
  4. LISINOPRIL [Concomitant]
  5. ATORVASTATIN CALCIUM [Concomitant]
  6. ESCITALOPRAM OXALATE [Concomitant]
  7. CYCLOBENZAPRINE HYDROCHLORIDE [Concomitant]
  8. METHYLPHENIDATE [Concomitant]
  9. PREGABALIN [Concomitant]
  10. ESOMEPRAZOLE MAGNESIUM [Concomitant]
  11. B12 [Concomitant]
  12. TESTOSTERONE [Concomitant]
  13. DICLOFENAC SODIUM [Concomitant]
  14. DIAZEPAM (DIAZEPAM) [Concomitant]
  15. PREDNISONE (PREDNISONE) [Concomitant]
  16. HYDROCODONE [Concomitant]

REACTIONS (19)
  - Neuralgia [None]
  - Overdose [None]
  - Knee arthroplasty [None]
  - Toxicity to various agents [None]
  - Neuropathy peripheral [None]
  - Intentional drug misuse [None]
  - Blood testosterone decreased [None]
  - Bone disorder [None]
  - Depression [None]
  - Nervous system disorder [None]
  - Intervertebral disc protrusion [None]
  - Muscle swelling [None]
  - Intervertebral disc protrusion [None]
  - Overdose [None]
  - Intervertebral disc protrusion [None]
  - Tarsal tunnel syndrome [None]
  - Insomnia [None]
  - Cartilage atrophy [None]
  - Poisoning [None]
